FAERS Safety Report 9314344 (Version 1)
Quarter: 2013Q2

REPORT INFORMATION
  Report Type: Spontaneous
  Country: US (occurrence: None)
  Receive Date: 20130524
  Receipt Date: 20130524
  Transmission Date: 20140414
  Serious: Yes (Death, Hospitalization)
  Sender: FDA-Public Use
  Company Number: None

PATIENT
  Age: 65 Year
  Sex: Male
  Weight: 151.7 kg

DRUGS (2)
  1. LEVOFLOXACIN [Suspect]
     Indication: PNEUMONIA
     Dosage: 1 TAB EVERY DAY PO
     Route: 048
     Dates: start: 20130402, end: 20130408
  2. RANITIDINE [Suspect]
     Indication: GASTROOESOPHAGEAL REFLUX DISEASE
     Dosage: 1 TAB BID PO
     Route: 048
     Dates: start: 20130402, end: 20130428

REACTIONS (7)
  - Pneumonia [None]
  - Urinary tract infection [None]
  - Clostridium difficile infection [None]
  - Pyrexia [None]
  - Dyspnoea [None]
  - Asthenia [None]
  - Sepsis [None]
